FAERS Safety Report 18288136 (Version 2)
Quarter: 2020Q3

REPORT INFORMATION
  Report Type: Report from Study
  Country: AE (occurrence: AE)
  Receive Date: 20200921
  Receipt Date: 20200928
  Transmission Date: 20201103
  Serious: Yes (Other)
  Sender: FDA-Public Use
  Company Number: PHHY2019AE155811

PATIENT
  Age: 61 Year
  Sex: Female

DRUGS (5)
  1. KISQALI [Suspect]
     Active Substance: RIBOCICLIB
     Dosage: 200 MG, TID
     Route: 048
  2. KISQALI [Suspect]
     Active Substance: RIBOCICLIB
     Dosage: 1 DF, BID
     Route: 048
     Dates: start: 20190710
  3. KISQALI [Suspect]
     Active Substance: RIBOCICLIB
     Dosage: UNK, TID (THREE TABLETS AT ONCE)
     Route: 048
  4. KISQALI [Suspect]
     Active Substance: RIBOCICLIB
     Indication: BREAST CANCER METASTATIC
     Dosage: 400 MG, BID
     Route: 048
     Dates: start: 20190528
  5. KISQALI [Suspect]
     Active Substance: RIBOCICLIB
     Dosage: UNK, TID (ONE TABLET THREE TIMES A DAY)
     Route: 048

REACTIONS (7)
  - Eye infection [Recovered/Resolved]
  - Decreased appetite [Recovering/Resolving]
  - Product dose omission issue [Recovered/Resolved]
  - Vomiting [Recovering/Resolving]
  - Product prescribing error [Unknown]
  - Fatigue [Recovering/Resolving]
  - Overdose [Unknown]

NARRATIVE: CASE EVENT DATE: 20190627
